FAERS Safety Report 23873987 (Version 2)
Quarter: 2024Q2

REPORT INFORMATION
  Report Type: Spontaneous
  Country: JO (occurrence: JO)
  Receive Date: 20240520
  Receipt Date: 20240529
  Transmission Date: 20240717
  Serious: Yes (Death, Hospitalization, Other)
  Sender: FDA-Public Use
  Company Number: JO-SA-SAC20240517001034

PATIENT
  Age: 1 Year
  Sex: Male
  Weight: 4.9 kg

DRUGS (1)
  1. MYOZYME [Suspect]
     Active Substance: ALGLUCOSIDASE ALFA
     Indication: Glycogen storage disease type II
     Dosage: 100 MG (20 MG/KG), QOW
     Route: 042
     Dates: end: 20240306

REACTIONS (3)
  - Pneumonia [Fatal]
  - C-reactive protein increased [Unknown]
  - Red blood cell sedimentation rate increased [Unknown]

NARRATIVE: CASE EVENT DATE: 20240301
